FAERS Safety Report 8031050-4 (Version None)
Quarter: 2012Q1

REPORT INFORMATION
  Report Type: 
  Country: None (occurrence: None)
  Receive Date: 20120105
  Receipt Date: 20111220
  Transmission Date: 20120608
  Serious: Yes (Hospitalization)
  Sender: FDA-Public Use
  Company Number: NL01PV11.24177

PATIENT
  Age: 67 Year
  Sex: Male

DRUGS (2)
  1. CHEMOTHERAPEUTICS NOS [Concomitant]
  2. TAMSULOSIN HCL [Suspect]
     Indication: BLADDER OBSTRUCTION
     Dosage: 400 UG

REACTIONS (1)
  - TRANSIENT ISCHAEMIC ATTACK [None]
